FAERS Safety Report 12436777 (Version 1)
Quarter: 2016Q2

REPORT INFORMATION
  Report Type: Report from Study
  Country: US (occurrence: US)
  Receive Date: 20160606
  Receipt Date: 20160606
  Transmission Date: 20160815
  Serious: No
  Sender: FDA-Public Use
  Company Number: US-ALEXION-A201603897

PATIENT
  Age: 36 Year
  Sex: Female
  Weight: 57 kg

DRUGS (6)
  1. FOLVITE                            /00024201/ [Concomitant]
     Indication: PRODUCT USED FOR UNKNOWN INDICATION
     Dosage: UNK, QD (1 TAB DAILY)
     Route: 048
  2. SOLIRIS [Suspect]
     Active Substance: ECULIZUMAB
     Dosage: 900 MG, Q2W
     Route: 042
  3. SOLIRIS [Suspect]
     Active Substance: ECULIZUMAB
     Indication: PAROXYSMAL NOCTURNAL HAEMOGLOBINURIA
     Dosage: UNK
     Route: 042
  4. THIAMINE HCL [Concomitant]
     Indication: PRODUCT USED FOR UNKNOWN INDICATION
     Dosage: UNK, QD (1 TAB DAILY)
     Route: 048
  5. SOLIRIS [Suspect]
     Active Substance: ECULIZUMAB
     Dosage: UNK, Q2W
     Dates: start: 20150108
  6. FERROUS SULFATE. [Concomitant]
     Active Substance: FERROUS SULFATE
     Indication: PRODUCT USED FOR UNKNOWN INDICATION
     Dosage: 325 MG, QD (DAILY WITH BREAKFAST)
     Route: 048

REACTIONS (5)
  - Fatigue [Not Recovered/Not Resolved]
  - Blood alkaline phosphatase increased [Unknown]
  - Abdominal pain lower [Not Recovered/Not Resolved]
  - Ovarian cyst [Unknown]
  - Adverse event [Unknown]

NARRATIVE: CASE EVENT DATE: 20151123
